FAERS Safety Report 8355720-3 (Version None)
Quarter: 2012Q2

REPORT INFORMATION
  Report Type: 
  Country: None (occurrence: None)
  Receive Date: 20120510
  Receipt Date: 20120423
  Transmission Date: 20120825
  Serious: Yes (Other)
  Sender: FDA-Public Use
  Company Number: 2012-1945

PATIENT
  Age: 5 Year
  Sex: Male
  Weight: 15.4 kg

DRUGS (2)
  1. INCRELEX [Suspect]
     Indication: GROWTH RETARDATION
     Dosage: 36 UNITS (18 UNITS,2 IN 1 D),SUBCUTANEOUS
     Route: 058
     Dates: start: 20110207
  2. INCRELEX [Suspect]
     Indication: OFF LABEL USE
     Dosage: 36 UNITS (18 UNITS,2 IN 1 D),SUBCUTANEOUS
     Route: 058
     Dates: start: 20110207

REACTIONS (1)
  - SINUSITIS [None]
